FAERS Safety Report 4945101-4 (Version None)
Quarter: 2006Q1

REPORT INFORMATION
  Report Type: 
  Country: None (occurrence: None)
  Receive Date: 20060316
  Receipt Date: 20060308
  Transmission Date: 20060701
  Serious: Yes (Hospitalization)
  Sender: FDA-Public Use
  Company Number: 2006UW03999

PATIENT
  Sex: Female

DRUGS (2)
  1. CRESTOR [Suspect]
     Route: 048
     Dates: start: 20050101
  2. UNSPECIFED MULTIPLE MEDICATIONS [Concomitant]

REACTIONS (2)
  - CHEST PAIN [None]
  - RHABDOMYOLYSIS [None]
